FAERS Safety Report 25891277 (Version 4)
Quarter: 2025Q4

REPORT INFORMATION
  Report Type: Spontaneous
  Country: CA (occurrence: CA)
  Receive Date: 20251007
  Receipt Date: 20251205
  Transmission Date: 20260118
  Serious: Yes (Other)
  Sender: PFIZER
  Company Number: CA-PFIZER INC-202500198112

PATIENT
  Age: 62 Year
  Sex: Male

DRUGS (3)
  1. RUXIENCE [Suspect]
     Active Substance: RITUXIMAB-PVVR
     Indication: Granulomatosis with polyangiitis
     Dosage: 1000 MG, DAY 1 AND 15
     Route: 042
     Dates: start: 20250530
  2. IMURAN [Concomitant]
     Active Substance: AZATHIOPRINE
     Dosage: 1 DF
     Dates: start: 2000
  3. PREDNISONE [Concomitant]
     Active Substance: PREDNISONE
     Dosage: 50 MG

REACTIONS (4)
  - Cataract [Unknown]
  - Immunoglobulins decreased [Unknown]
  - Sinusitis [Recovered/Resolved]
  - Off label use [Unknown]

NARRATIVE: CASE EVENT DATE: 20250101
